FAERS Safety Report 18166102 (Version 1)
Quarter: 2020Q3

REPORT INFORMATION
  Report Type: Spontaneous
  Country: US (occurrence: US)
  Receive Date: 20200818
  Receipt Date: 20200818
  Transmission Date: 20201103
  Serious: No
  Sender: FDA-Public Use
  Company Number: US-TEVA-2020-US-1816557

PATIENT
  Age: 12 Year
  Sex: Female

DRUGS (2)
  1. GUANFACINE HCL TEVA [Suspect]
     Active Substance: GUANFACINE HYDROCHLORIDE
     Indication: ANXIETY
     Route: 065
     Dates: start: 202006
  2. GUANFACINE HCL TEVA [Suspect]
     Active Substance: GUANFACINE HYDROCHLORIDE
     Indication: ATTENTION DEFICIT HYPERACTIVITY DISORDER

REACTIONS (3)
  - Psychomotor hyperactivity [Unknown]
  - Drug ineffective [Unknown]
  - Somnolence [Unknown]

NARRATIVE: CASE EVENT DATE: 2020
